FAERS Safety Report 23667351 (Version 2)
Quarter: 2024Q2

REPORT INFORMATION
  Report Type: Spontaneous
  Country: US (occurrence: US)
  Receive Date: 20240325
  Receipt Date: 20240409
  Transmission Date: 20240716
  Serious: Yes (Other)
  Sender: FDA-Public Use
  Company Number: US-SA-SAC20240321000092

PATIENT
  Age: 50 Year
  Sex: Female

DRUGS (1)
  1. DUPIXENT [Suspect]
     Active Substance: DUPILUMAB
     Indication: Asthma
     Dosage: 300 MG, QOW
     Route: 058

REACTIONS (10)
  - Myocardial infarction [Unknown]
  - Pulmonary hypertension [Unknown]
  - Right ventricular failure [Unknown]
  - Lung neoplasm malignant [Unknown]
  - Musculoskeletal stiffness [Unknown]
  - Atrioventricular block [Unknown]
  - Chronic obstructive pulmonary disease [Unknown]
  - Dyspnoea [Unknown]
  - Accidental exposure to product [Unknown]
  - Exposure via skin contact [Unknown]
